FAERS Safety Report 14603109 (Version 1)
Quarter: 2018Q1

REPORT INFORMATION
  Report Type: Other
  Country: ES (occurrence: ES)
  Receive Date: 20180306
  Receipt Date: 20180306
  Transmission Date: 20180509
  Serious: Yes (Other)
  Sender: FDA-Public Use
  Company Number: ES-COLLEGIUM PHARMACEUTICAL, INC.-ES-2018DEP000560

PATIENT
  Age: 48 Year
  Sex: Male

DRUGS (1)
  1. TAPENTADOL HYDROCHLORIDE [Suspect]
     Active Substance: TAPENTADOL HYDROCHLORIDE
     Indication: JOINT INJURY
     Dosage: 50 MG, BID
     Route: 048
     Dates: start: 20170127

REACTIONS (3)
  - Irritability [Recovered/Resolved]
  - Anger [Recovered/Resolved]
  - Conduct disorder [Recovered/Resolved]

NARRATIVE: CASE EVENT DATE: 20170701
